FAERS Safety Report 18482158 (Version 1)
Quarter: 2020Q4

REPORT INFORMATION
  Report Type: Spontaneous
  Country: BR (occurrence: BR)
  Receive Date: 20201109
  Receipt Date: 20201109
  Transmission Date: 20210114
  Serious: Yes (Death, Other)
  Sender: FDA-Public Use
  Company Number: BR-DSJP-DSU-2020-125645

PATIENT
  Age: 59 Year
  Sex: Female

DRUGS (2)
  1. ENHERTU [Suspect]
     Active Substance: FAM-TRASTUZUMAB DERUXTECAN-NXKI
     Indication: HER2 POSITIVE GASTRIC CANCER
     Dosage: 6.4 MG/KG
     Route: 042
     Dates: start: 20200812
  2. ENHERTU [Suspect]
     Active Substance: FAM-TRASTUZUMAB DERUXTECAN-NXKI
     Indication: ADENOCARCINOMA GASTRIC

REACTIONS (5)
  - Dyspnoea [Unknown]
  - Off label use [Unknown]
  - Death [Fatal]
  - Hypoxia [Unknown]
  - Cough [Unknown]

NARRATIVE: CASE EVENT DATE: 20200812
